FAERS Safety Report 5432024-X (Version None)
Quarter: 2007Q3

REPORT INFORMATION
  Report Type: 
  Country: None (occurrence: None)
  Receive Date: 20070830
  Receipt Date: 20070810
  Transmission Date: 20080115
  Serious: No
  Sender: FDA-Public Use
  Company Number: US-BOEHRINGER INGELHEIM PHARMACEUTICALS, INC.-2007-BP-18962BP

PATIENT
  Sex: Male

DRUGS (1)
  1. CLONIDINE HCL [Suspect]
     Route: 048

REACTIONS (3)
  - DIZZINESS [None]
  - DYSSTASIA [None]
  - FATIGUE [None]
